FAERS Safety Report 22392884 (Version 1)
Quarter: 2023Q2

REPORT INFORMATION
  Report Type: Spontaneous
  Country: GB (occurrence: GB)
  Receive Date: 20230601
  Receipt Date: 20230601
  Transmission Date: 20230722
  Serious: Yes (Other)
  Sender: FDA-Public Use
  Company Number: GB-MYLANLABS-2023M1032684

PATIENT
  Age: 46 Year
  Sex: Male
  Weight: 92 kg

DRUGS (10)
  1. LANSOPRAZOLE [Suspect]
     Active Substance: LANSOPRAZOLE
     Indication: Gastric disorder
     Dosage: 15 MILLIGRAM;
     Route: 050
  2. PREGABALIN [Suspect]
     Active Substance: PREGABALIN
     Indication: Product used for unknown indication
     Dosage: 300 MILLIGRAM;
     Route: 050
  3. CLOZARIL [Suspect]
     Active Substance: CLOZAPINE
     Indication: Schizophrenia
     Dosage: 237.5 MILLIGRAM
     Route: 050
     Dates: start: 20010701
  4. ZOPICLONE [Suspect]
     Active Substance: ZOPICLONE
     Indication: Insomnia
     Dosage: 3.75 MILLIGRAM, PRN;
     Route: 050
  5. EDOXABAN [Suspect]
     Active Substance: EDOXABAN
     Indication: Prophylaxis
     Dosage: 60 MILLIGRAM;
     Route: 065
  6. DOCUSATE [Suspect]
     Active Substance: DOCUSATE
     Indication: Constipation
     Dosage: 100 MILLIGRAM, BID
     Route: 050
  7. POLYETHYLENE GLYCOL 3350\POTASSIUM CHLORIDE\SODIUM BICARBONATE\SODIUM [Concomitant]
     Active Substance: POLYETHYLENE GLYCOL 3350\POTASSIUM CHLORIDE\SODIUM BICARBONATE\SODIUM CHLORIDE
     Indication: Constipation
     Dosage: UNK, QD (DAILY, LONG TERM); ;
     Route: 050
  8. CITALOPRAM [Concomitant]
     Active Substance: CITALOPRAM HYDROBROMIDE
     Indication: Anxiety
     Dosage: 40 MILLIGRAM (MANY YEARS);
     Route: 050
  9. DIAZEPAM [Concomitant]
     Active Substance: DIAZEPAM
     Indication: Anxiety
     Dosage: 2 MILLIGRAM, PRN (SEVERAL YEARS);
     Route: 050
  10. PENICILLIN V [Concomitant]
     Active Substance: PENICILLIN V
     Indication: Prophylaxis
     Dosage: 250 MILLIGRAM (MORE THAN 20 YEARS BUT UNCERTAIN IN CONSISTENT USE);
     Route: 050

REACTIONS (2)
  - Neutropenia [Unknown]
  - Blood test abnormal [Recovered/Resolved]

NARRATIVE: CASE EVENT DATE: 20200901
